FAERS Safety Report 10379411 (Version 4)
Quarter: 2014Q4

REPORT INFORMATION
  Report Type: Report from Study
  Country: CZ (occurrence: CZ)
  Receive Date: 20140812
  Receipt Date: 20141003
  Transmission Date: 20150528
  Serious: Yes (Hospitalization)
  Sender: FDA-Public Use
  Company Number: CZ-PFIZER INC-2014214699

PATIENT
  Age: 72 Year
  Sex: Female
  Weight: 76 kg

DRUGS (14)
  1. DESIPRAMINE [Suspect]
     Active Substance: DESIPRAMINE
     Indication: MANTLE CELL LYMPHOMA
     Dosage: 50 MG, WEEKLY/ FOR TWO WEEKS
     Route: 048
     Dates: start: 20140227, end: 20140306
  2. TEMSIROLIMUS [Suspect]
     Active Substance: TEMSIROLIMUS
     Dosage: ARM A: 75 MG, WEEKLY
     Route: 042
     Dates: start: 20140327
  3. DITHIADEN [Concomitant]
     Active Substance: BISULEPIN
     Indication: PREMEDICATION
     Dosage: UNK
  4. ZALDIAR [Concomitant]
     Active Substance: ACETAMINOPHEN\TRAMADOL HYDROCHLORIDE
     Indication: SPINAL PAIN
  5. LOSARTAN POTASSIUM. [Concomitant]
     Active Substance: LOSARTAN POTASSIUM
     Indication: HYPERTENSION
     Dosage: UNK
  6. DALACIN [Concomitant]
     Active Substance: CLINDAMYCIN\CLINDAMYCIN PHOSPHATE
     Indication: INFLAMMATION
     Dosage: UNK
  7. KALNORMIN [Concomitant]
     Active Substance: POTASSIUM CHLORIDE
     Indication: PROPHYLAXIS
     Dosage: UNK
  8. TENSIOMIN [Concomitant]
     Indication: HYPERTENSION
     Dosage: UNK
  9. ZALDIAR [Concomitant]
     Active Substance: ACETAMINOPHEN\TRAMADOL HYDROCHLORIDE
     Indication: MUCOSAL INFLAMMATION
     Dosage: UNK
  10. MESOCAIN [Concomitant]
     Indication: OSTEOARTHRITIS
     Dosage: 1 %, UNK
  11. TEMSIROLIMUS [Suspect]
     Active Substance: TEMSIROLIMUS
     Indication: MANTLE CELL LYMPHOMA
     Dosage: ARM A: 175 MG, WEEKLY FOR FIRST 3 WEEKS
     Route: 042
     Dates: start: 20140306, end: 20140320
  12. VASOCARDIN [Concomitant]
     Active Substance: METOPROLOL
     Indication: HYPERTENSION
     Dosage: UNK
  13. ZALDIAR [Concomitant]
     Active Substance: ACETAMINOPHEN\TRAMADOL HYDROCHLORIDE
     Indication: OSTEOARTHRITIS
  14. AVELOX [Concomitant]
     Active Substance: MOXIFLOXACIN HYDROCHLORIDE
     Indication: PYREXIA
     Dosage: UNK
     Dates: start: 20140404, end: 20140414

REACTIONS (1)
  - Atypical pneumonia [Recovered/Resolved with Sequelae]

NARRATIVE: CASE EVENT DATE: 20140729
